FAERS Safety Report 17677772 (Version 1)
Quarter: 2020Q2

REPORT INFORMATION
  Report Type: Spontaneous
  Country: DE (occurrence: DE)
  Receive Date: 20200416
  Receipt Date: 20200416
  Transmission Date: 20200714
  Serious: Yes (Other)
  Sender: FDA-Public Use
  Company Number: DE-BEH-2020115646

PATIENT
  Age: 83 Year
  Sex: Male
  Weight: 63.7 kg

DRUGS (2)
  1. PRIVIGEN [Suspect]
     Active Substance: HUMAN IMMUNOGLOBULIN G
     Indication: IMMUNODEFICIENCY
     Dosage: 5 GRAM
     Route: 042
     Dates: start: 20200116
  2. PRIVIGEN [Suspect]
     Active Substance: HUMAN IMMUNOGLOBULIN G
     Dosage: 10 GRAM
     Route: 042
     Dates: start: 20200116

REACTIONS (5)
  - Hypersensitivity [Recovered/Resolved]
  - Blood pressure increased [Recovered/Resolved]
  - Pulmonary oedema [Recovered/Resolved]
  - Respiratory distress [Recovered/Resolved]
  - Dyspnoea [Recovered/Resolved]

NARRATIVE: CASE EVENT DATE: 20200116
